FAERS Safety Report 4885539-7 (Version None)
Quarter: 2005Q4

REPORT INFORMATION
  Report Type: 
  Country: None (occurrence: None)
  Receive Date: 20051220
  Receipt Date: 20041214
  Transmission Date: 20060501
  Serious: Yes (Other)
  Sender: FDA-Public Use
  Company Number: HQWYE036016DEC04

PATIENT
  Age: 39 Year
  Sex: Female
  Weight: 61.29 kg

DRUGS (3)
  1. EFFEXOR XR [Suspect]
     Indication: ANXIETY
     Dosage: 37.5 MG 1X PER 1 TOT, ORAL
     Route: 048
     Dates: start: 20041210, end: 20041210
  2. EFFEXOR XR [Suspect]
     Indication: DEPRESSION
     Dosage: 37.5 MG 1X PER 1 TOT, ORAL
     Route: 048
     Dates: start: 20041210, end: 20041210
  3. ORTHO EVRA [Concomitant]

REACTIONS (5)
  - ANOREXIA [None]
  - COORDINATION ABNORMAL [None]
  - DISTURBANCE IN ATTENTION [None]
  - NAUSEA [None]
  - SOMNOLENCE [None]
